FAERS Safety Report 4469033-3 (Version None)
Quarter: 2004Q4

REPORT INFORMATION
  Report Type: 
  Country: None (occurrence: None)
  Receive Date: 20041005
  Receipt Date: 20040921
  Transmission Date: 20050328
  Serious: Yes (Life-Threatening)
  Sender: FDA-Public Use
  Company Number: A06200400001

PATIENT
  Age: 77 Year
  Sex: Male

DRUGS (3)
  1. ELOXATIN [Suspect]
     Indication: COLON CANCER
     Dosage: 85 MG/M2  Q2W   INTRAVENOUS DRIP
     Route: 041
     Dates: start: 20031021, end: 20031224
  2. ELOXATIN [Suspect]
     Indication: METASTASES TO LIVER
     Dosage: 85 MG/M2  Q2W   INTRAVENOUS DRIP
     Route: 041
     Dates: start: 20031021, end: 20031224
  3. XELODA [Concomitant]

REACTIONS (4)
  - CARDIOVASCULAR DISORDER [None]
  - INTERSTITIAL LUNG DISEASE [None]
  - METABOLIC ACIDOSIS [None]
  - RESPIRATORY FAILURE [None]
